FAERS Safety Report 7222410-X (Version None)
Quarter: 2011Q1

REPORT INFORMATION
  Report Type: 
  Country: None (occurrence: None)
  Receive Date: 20110103
  Receipt Date: 20101222
  Transmission Date: 20110831
  Serious: Yes (Hospitalization, Other)
  Sender: FDA-Public Use
  Company Number: 2010SP066110

PATIENT
  Age: 42 Year
  Sex: Female

DRUGS (2)
  1. RIBAVIRIN [Suspect]
     Indication: HEPATITIS C
     Dosage: 800 MG QD;
     Dates: start: 20090101
  2. PEGYLATED INTERFERON (PEGINTERFERON ALFA-2A) [Suspect]
     Indication: HEPATITIS C
     Dates: start: 20090101

REACTIONS (14)
  - WEIGHT DECREASED [None]
  - RASH PAPULAR [None]
  - DEHYDRATION [None]
  - BLOOD CALCIUM DECREASED [None]
  - COELIAC DISEASE [None]
  - LEUKOPENIA [None]
  - BLOOD POTASSIUM DECREASED [None]
  - PROTEIN TOTAL DECREASED [None]
  - SKIN LESION [None]
  - APHTHOUS STOMATITIS [None]
  - MACROCYTOSIS [None]
  - LICHEN PLANUS [None]
  - ANAEMIA [None]
  - DERMATITIS HERPETIFORMIS [None]
